FAERS Safety Report 24352263 (Version 1)
Quarter: 2024Q3

REPORT INFORMATION
  Report Type: Spontaneous
  Country: US (occurrence: US)
  Receive Date: 20240923
  Receipt Date: 20240923
  Transmission Date: 20241017
  Serious: No
  Sender: BAUSCH AND LOMB
  Company Number: US-BAUSCH-BL-2024-014106

PATIENT
  Age: 79 Year
  Sex: Male

DRUGS (2)
  1. XIFAXAN [Suspect]
     Active Substance: RIFAXIMIN
     Indication: Diarrhoea
     Route: 048
     Dates: start: 2024
  2. XIFAXAN [Suspect]
     Active Substance: RIFAXIMIN
     Indication: Constipation

REACTIONS (3)
  - Flatulence [Unknown]
  - Therapeutic product effect incomplete [Unknown]
  - Product use issue [Unknown]

NARRATIVE: CASE EVENT DATE: 20240101
